FAERS Safety Report 10258361 (Version 1)
Quarter: 2014Q2

REPORT INFORMATION
  Report Type: Spontaneous
  Country: DE (occurrence: DE)
  Receive Date: 20140625
  Receipt Date: 20140625
  Transmission Date: 20141212
  Serious: Yes (Other)
  Sender: FDA-Public Use
  Company Number: DE-PFIZER INC-2014166946

PATIENT
  Age: 63 Year
  Sex: Male

DRUGS (1)
  1. XALATAN [Suspect]

REACTIONS (2)
  - Neoplasm malignant [Unknown]
  - Eye irritation [Unknown]
